FAERS Safety Report 9843820 (Version 1)
Quarter: 2013Q4

REPORT INFORMATION
  Report Type: Spontaneous
  Country: US (occurrence: None)
  Receive Date: 20131223
  Receipt Date: 20131223
  Transmission Date: 20140711
  Serious: No
  Sender: FDA-Public Use
  Company Number: 1000050411

PATIENT
  Age: 63 Year
  Sex: Female

DRUGS (4)
  1. LINZESS (LINACLOTIDE) (290 MICROGRAM, CAPSULES) [Suspect]
     Indication: CONSTIPATION
     Dosage: 290MCG (290 MCG, 1 IN 1 D), ORAL
     Route: 048
     Dates: start: 201309
  2. LEVOXYL (LEVOTHYROXINE SODIUM) (LEVOTHYROXINE SODIUM) [Concomitant]
  3. ATENOLOL (ATENOLOL) (ATENOLOL) [Concomitant]
  4. ZETIA (EZETIMIBE) EZETIMIBE) [Concomitant]

REACTIONS (2)
  - Abdominal distension [None]
  - Abdominal pain upper [None]
